FAERS Safety Report 9355774 (Version 2)
Quarter: 2014Q1

REPORT INFORMATION
  Report Type: Spontaneous
  Country: US (occurrence: US)
  Receive Date: 20130619
  Receipt Date: 20140129
  Transmission Date: 20141002
  Serious: No
  Sender: FDA-Public Use
  Company Number: US-PFIZER INC-2013182758

PATIENT
  Age: 63 Year
  Sex: Female

DRUGS (7)
  1. ENBREL [Suspect]
     Dosage: 50 MG, UNK
     Route: 065
  2. ENBREL [Suspect]
     Dosage: 50 MG/ML, UNK
  3. ACTEMRA [Suspect]
     Dosage: 200 MG/10 ML VIAL, UNK
  4. LORATADINE [Concomitant]
     Dosage: 10 MG, UNK
  5. MELOXICAM [Concomitant]
     Dosage: 15 MG, UNK
  6. SYNTHROID [Concomitant]
     Dosage: 88 MUG, UNK
  7. CALCIUM CARBONATE, COLECALCIFEROL [Concomitant]
     Dosage: UNK

REACTIONS (1)
  - Drug hypersensitivity [Unknown]
